FAERS Safety Report 12012709 (Version 1)
Quarter: 2016Q1

REPORT INFORMATION
  Report Type: Report from Study
  Country: BR (occurrence: BR)
  Receive Date: 20160205
  Receipt Date: 20160205
  Transmission Date: 20160526
  Serious: Yes (Other)
  Sender: FDA-Public Use
  Company Number: PHHY2016BR015317

PATIENT
  Sex: Female
  Weight: 45 kg

DRUGS (1)
  1. EXJADE [Suspect]
     Active Substance: DEFERASIROX
     Indication: SICKLE CELL ANAEMIA
     Dosage: 5 MG/KG, QD (1 DF OF 250 MG)
     Route: 048

REACTIONS (9)
  - Malaise [Unknown]
  - Serum ferritin increased [Unknown]
  - Sickle cell anaemia with crisis [Recovering/Resolving]
  - Gait disturbance [Unknown]
  - Aggression [Unknown]
  - Wrong technique in product usage process [Unknown]
  - Cerebrovascular accident [Unknown]
  - Irritability [Unknown]
  - Drug intolerance [Unknown]
